FAERS Safety Report 8163691-8 (Version None)
Quarter: 2012Q1

REPORT INFORMATION
  Report Type: 
  Country: None (occurrence: None)
  Receive Date: 20120224
  Receipt Date: 20120213
  Transmission Date: 20120608
  Serious: Yes (Hospitalization)
  Sender: FDA-Public Use
  Company Number: PHEH2011US012156

PATIENT
  Sex: Female

DRUGS (1)
  1. GLEEVEC [Suspect]
     Indication: CHRONIC MYELOID LEUKAEMIA
     Dosage: 400 MG, DAILY
     Route: 048
     Dates: start: 20070813

REACTIONS (5)
  - LUNG DISORDER [None]
  - MALAISE [None]
  - DIARRHOEA [None]
  - ABDOMINAL PAIN UPPER [None]
  - DYSPNOEA [None]
